FAERS Safety Report 23381811 (Version 2)
Quarter: 2024Q1

REPORT INFORMATION
  Report Type: Spontaneous
  Country: HR (occurrence: HR)
  Receive Date: 20240109
  Receipt Date: 20240212
  Transmission Date: 20240410
  Serious: Yes (Other)
  Sender: FDA-Public Use
  Company Number: None

PATIENT
  Age: 26 Year
  Sex: Female
  Weight: 80 kg

DRUGS (1)
  1. CLINDAMYCIN PHOSPHATE [Suspect]
     Active Substance: CLINDAMYCIN PHOSPHATE
     Indication: Vulvovaginitis streptococcal
     Dosage: UNK
     Route: 067
     Dates: start: 20230929, end: 20231012

REACTIONS (4)
  - Maternal exposure during pregnancy [Unknown]
  - Vaginal discharge [Unknown]
  - Back pain [Unknown]
  - Vulvovaginal burning sensation [Unknown]

NARRATIVE: CASE EVENT DATE: 20230929
